FAERS Safety Report 26032581 (Version 2)
Quarter: 2025Q4

REPORT INFORMATION
  Report Type: Spontaneous
  Country: EU (occurrence: EU)
  Receive Date: 20251112
  Receipt Date: 20251118
  Transmission Date: 20260118
  Serious: Yes (Other)
  Sender: AUROBINDO
  Company Number: EU-EMA-DD-20251031-7482701-121047

PATIENT
  Age: 76 Year
  Sex: Female

DRUGS (15)
  1. ROSUVASTATIN [Suspect]
     Active Substance: ROSUVASTATIN
     Indication: Product used for unknown indication
     Dosage: UNK
     Route: 065
  2. ATORVASTATIN [Suspect]
     Active Substance: ATORVASTATIN
     Indication: Blood cholesterol increased
     Dosage: 20 MILLIGRAM, ONCE A DAY (20 MILLIGRAM, IN EVENING)
     Route: 065
     Dates: start: 20240409, end: 20240923
  3. VITAMIN D3 [Suspect]
     Active Substance: CHOLECALCIFEROL
     Indication: Product used for unknown indication
     Dosage: UNK
     Route: 065
  4. UNSPECIFIED INGREDIENT [Concomitant]
     Active Substance: UNSPECIFIED INGREDIENT
     Indication: Product used for unknown indication
     Dosage: UNK
     Route: 065
  5. Panadol forte [Concomitant]
     Indication: Pain
     Dosage: 1000 MILLIGRAM
     Route: 065
  6. FUROSEMIDE [Concomitant]
     Active Substance: FUROSEMIDE
     Indication: Product used for unknown indication
     Dosage: 2 DOSAGE FORM, ONCE A DAY
     Route: 065
  7. FUROSEMIDE [Concomitant]
     Active Substance: FUROSEMIDE
     Dosage: 4 DOSAGE FORM, ONCE A DAY
     Route: 065
  8. B12 [Concomitant]
     Indication: Product used for unknown indication
     Dosage: UNK
     Route: 065
  9. CALCIUM [Concomitant]
     Active Substance: CALCIUM
     Indication: Product used for unknown indication
     Dosage: UNK
     Route: 065
  10. FOLIC ACID [Concomitant]
     Active Substance: FOLIC ACID
     Indication: Product used for unknown indication
     Dosage: UNK
     Route: 065
  11. PROLIA [Concomitant]
     Active Substance: DENOSUMAB
     Indication: Spinal fracture
     Dosage: UNK
     Route: 065
  12. LEVOTHYROXINE [Concomitant]
     Active Substance: LEVOTHYROXINE
     Indication: Hypothyroidism
     Dosage: 10 TABLETS PER WEEK
     Route: 065
  13. LEVOTHYROXINE [Concomitant]
     Active Substance: LEVOTHYROXINE
     Dosage: 100 MICROGRAM, 10 DOSAGE FORM/WEEK
     Route: 065
  14. LEVOTHYROXINE [Concomitant]
     Active Substance: LEVOTHYROXINE
     Dosage: 6 DOSAGE FORM, EVERY WEEK
     Route: 065
  15. LEVOTHYROXINE [Concomitant]
     Active Substance: LEVOTHYROXINE
     Dosage: 4 DOSAGE FORM, EVERY WEEK
     Route: 065

REACTIONS (14)
  - Balance disorder [Unknown]
  - Fall [Unknown]
  - Spinal fracture [Unknown]
  - Peripheral swelling [Unknown]
  - Joint effusion [Unknown]
  - Pain in extremity [Unknown]
  - Hernia [Unknown]
  - Gastrooesophageal reflux disease [Unknown]
  - Generalised oedema [Unknown]
  - Back pain [Unknown]
  - Abdominal hernia [Unknown]
  - Umbilical hernia [Unknown]
  - Oedema peripheral [Unknown]
  - Contusion [Unknown]

NARRATIVE: CASE EVENT DATE: 20240101
